FAERS Safety Report 7326774-8 (Version None)
Quarter: 2011Q1

REPORT INFORMATION
  Report Type: 
  Country: None (occurrence: None)
  Receive Date: 20110223
  Receipt Date: 20110208
  Transmission Date: 20110831
  Serious: Yes (Hospitalization, Other)
  Sender: FDA-Public Use
  Company Number: JPI-P-013838

PATIENT
  Age: 77 Year
  Sex: Male
  Weight: 86.1834 kg

DRUGS (2)
  1. XYREM [Suspect]
     Indication: NARCOLEPSY
     Dosage: 6 GM (3 GM,2 IN 1 D), ORAL; (UNKNOWN,2 IN 1 ), ORAL; 8 GM (4 GM,2 IN 1 D), ORAL
     Route: 048
     Dates: start: 20060217
  2. XYREM [Suspect]
     Indication: NARCOLEPSY
     Dosage: 6 GM (3 GM,2 IN 1 D), ORAL; (UNKNOWN,2 IN 1 ), ORAL; 8 GM (4 GM,2 IN 1 D), ORAL
     Route: 048
     Dates: start: 20060126

REACTIONS (1)
  - NERVE COMPRESSION [None]
